FAERS Safety Report 6159078-X (Version None)
Quarter: 2009Q2

REPORT INFORMATION
  Report Type: 
  Country: None (occurrence: None)
  Receive Date: 20090414
  Receipt Date: 20090406
  Transmission Date: 20091009
  Serious: Yes (Other)
  Sender: FDA-Public Use
  Company Number: 2009SP007393

PATIENT
  Age: 49 Year
  Sex: Male

DRUGS (2)
  1. RIBAVIRIN [Suspect]
     Indication: HEPATITIS C
     Dates: start: 20081205
  2. PEG-INTERFERON ALFA 2A) (PEGINTERFERON ALFA-2A) [Suspect]
     Indication: HEPATITIS C
     Dates: start: 20081205

REACTIONS (1)
  - FACIAL PALSY [None]
